FAERS Safety Report 8557455-0 (Version None)
Quarter: 2012Q3

REPORT INFORMATION
  Report Type: 
  Country: None (occurrence: None)
  Receive Date: 20120725
  Receipt Date: 20120725
  Transmission Date: 20120928
  Serious: No
  Sender: FDA-Public Use
  Company Number: None

PATIENT

DRUGS (1)
  1. PANTOPRAZOLE [Suspect]

REACTIONS (2)
  - PRODUCT QUALITY ISSUE [None]
  - PRODUCT PACKAGING QUANTITY ISSUE [None]
